FAERS Safety Report 16028165 (Version 1)
Quarter: 2019Q1

REPORT INFORMATION
  Report Type: Spontaneous
  Country: US (occurrence: US)
  Receive Date: 20190205
  Receipt Date: 20190205
  Transmission Date: 20190418
  Serious: Yes (Hospitalization)
  Sender: FDA-Public Use
  Company Number: None

PATIENT
  Age: 83 Year
  Sex: Female

DRUGS (3)
  1. SODIUM CHLORIDE. [Concomitant]
     Active Substance: SODIUM CHLORIDE
  2. SYRINGES [Concomitant]
     Active Substance: DEVICE
  3. AMIKACIN. [Suspect]
     Active Substance: AMIKACIN
     Route: 048
     Dates: start: 20180417

REACTIONS (2)
  - Adult failure to thrive [None]
  - Weight gain poor [None]
